FAERS Safety Report 23737680 (Version 1)
Quarter: 2024Q2

REPORT INFORMATION
  Report Type: Spontaneous
  Country: GR (occurrence: GR)
  Receive Date: 20240412
  Receipt Date: 20240412
  Transmission Date: 20240716
  Serious: Yes (Death, Hospitalization, Other)
  Sender: FDA-Public Use
  Company Number: None

PATIENT
  Age: 44 Year
  Sex: Male

DRUGS (11)
  1. THYMOCYTE IMMUNE GLOBULIN NOS [Suspect]
     Active Substance: THYMOCYTE IMMUNE GLOBULIN NOS
     Indication: Renal transplant
     Dosage: 1.5 MG/KG/DAY
     Route: 065
  2. CEFTRIAXONE [Suspect]
     Active Substance: CEFTRIAXONE\CEFTRIAXONE SODIUM
     Indication: Antibiotic therapy
     Route: 065
  3. CYCLOSPORINE [Suspect]
     Active Substance: CYCLOSPORINE
     Indication: Renal transplant
     Dosage: 8 MG/KG/DAY
     Route: 065
  4. DAPSONE [Suspect]
     Active Substance: DAPSONE
     Indication: Product used for unknown indication
     Dosage: 100.000MG QD
     Route: 048
  5. ERYTHROMYCIN [Suspect]
     Active Substance: ERYTHROMYCIN
     Indication: Antibiotic therapy
     Dosage: UNK
     Route: 065
  6. GANCICLOVIR [Suspect]
     Active Substance: GANCICLOVIR
     Indication: Antiviral prophylaxis
     Route: 065
  7. HYDROCORTISONE [Suspect]
     Active Substance: HYDROCORTISONE
     Indication: Pneumocystis jirovecii pneumonia
     Dosage: REDUCED DOSE
     Route: 065
  8. MYCOPHENOLATE MOFETIL [Suspect]
     Active Substance: MYCOPHENOLATE MOFETIL
     Indication: Renal transplant
     Dosage: 2.000G QD
     Route: 065
  9. PENTAMIDINE ISETHIONATE [Suspect]
     Active Substance: PENTAMIDINE ISETHIONATE
     Indication: Antibiotic therapy
     Dosage: 4.000MG/KG QD
     Route: 042
  10. PREDNISOLONE [Suspect]
     Active Substance: PREDNISOLONE
     Indication: Renal transplant
     Dosage: 15 MG/DAY
     Route: 065
  11. SULFAMETHOXAZOLE AND TRIMETHOPRIM [Suspect]
     Active Substance: SULFAMETHOXAZOLE\TRIMETHOPRIM
     Indication: Pneumocystis jirovecii pneumonia
     Dosage: SULFAMETHOXAZOLE 100MG/KG, TRIMETHOPRIM 20 MG/KG
     Route: 065

REACTIONS (21)
  - Pleurisy [Fatal]
  - Lung infiltration [Fatal]
  - Dyspnoea [Fatal]
  - Pneumothorax [Fatal]
  - Lung abscess [Fatal]
  - Pulmonary haemorrhage [Fatal]
  - Pyrexia [Fatal]
  - Acute lung injury [Fatal]
  - Lung disorder [Fatal]
  - Blood lactate dehydrogenase abnormal [Fatal]
  - Pneumocystis jirovecii pneumonia [Fatal]
  - Bronchoalveolar lavage abnormal [Fatal]
  - Respiratory disorder [Fatal]
  - Lung infiltration [Fatal]
  - Pulmonary cavitation [Fatal]
  - Hypercapnia [Fatal]
  - Condition aggravated [Fatal]
  - Arrhythmia [Recovered/Resolved]
  - Aspiration pleural cavity [Unknown]
  - Torsade de pointes [Recovered/Resolved]
  - Gastrointestinal tube insertion [Unknown]
